FAERS Safety Report 4322668-0 (Version None)
Quarter: 2004Q1

REPORT INFORMATION
  Report Type: 
  Country: None (occurrence: None)
  Receive Date: 20040324
  Receipt Date: 20040206
  Transmission Date: 20041129
  Serious: No
  Sender: FDA-Public Use
  Company Number: US-BRISTOL-MYERS SQUIBB COMPANY-12499703

PATIENT

DRUGS (1)
  1. REYATAZ [Suspect]

REACTIONS (1)
  - HEPATIC ENZYME INCREASED [None]
